FAERS Safety Report 17855668 (Version 1)
Quarter: 2020Q2

REPORT INFORMATION
  Report Type: Spontaneous
  Country: US (occurrence: US)
  Receive Date: 20200603
  Receipt Date: 20200603
  Transmission Date: 20200714
  Serious: No
  Sender: FDA-Public Use
  Company Number: None

PATIENT
  Age: 23 Year
  Sex: Female
  Weight: 53.1 kg

DRUGS (2)
  1. TECFIDERA [Suspect]
     Active Substance: DIMETHYL FUMARATE
     Indication: MULTIPLE SCLEROSIS
     Route: 048
     Dates: start: 20190718, end: 20190727
  2. OLANZAPINE 10 MG PO NIGHTLY [Concomitant]

REACTIONS (4)
  - Abdominal distension [None]
  - Constipation [None]
  - Abdominal discomfort [None]
  - Dyspepsia [None]

NARRATIVE: CASE EVENT DATE: 20190730
